FAERS Safety Report 4509351-3 (Version None)
Quarter: 2004Q4

REPORT INFORMATION
  Report Type: 
  Country: None (occurrence: None)
  Receive Date: 20041123
  Receipt Date: 20040519
  Transmission Date: 20050328
  Serious: Yes (Hospitalization)
  Sender: FDA-Public Use
  Company Number: FR-MERCK-0405FRA00071

PATIENT
  Age: 60 Year
  Sex: Male

DRUGS (7)
  1. PRIMAXIN [Suspect]
     Route: 042
     Dates: start: 20040403, end: 20040404
  2. GENTAMICIN [Suspect]
     Route: 042
     Dates: start: 20040402, end: 20040404
  3. OFLOXACIN [Suspect]
     Route: 048
     Dates: start: 20040325, end: 20040330
  4. LEVOFLOXACIN [Suspect]
     Route: 065
     Dates: start: 20040331, end: 20040404
  5. SERTRALINE HYDROCHLORIDE [Concomitant]
     Indication: DEPRESSION
     Route: 048
  6. PYGEUM AFRICANUM EXTRACT [Concomitant]
     Indication: PROSTATIC ADENOMA
     Route: 048
  7. OMEPRAZOLE [Concomitant]
     Indication: PROPHYLAXIS AGAINST GASTROINTESTINAL ULCER
     Route: 048

REACTIONS (2)
  - MENINGITIS ASEPTIC [None]
  - STATUS EPILEPTICUS [None]
